FAERS Safety Report 15308265 (Version 1)
Quarter: 2018Q4

REPORT INFORMATION
  Report Type: Report from Study
  Country: ES (occurrence: ES)
  Receive Date: 20180822
  Receipt Date: 20180822
  Transmission Date: 20190204
  Serious: Yes (Hospitalization, Other)
  Sender: FDA-Public Use
  Company Number: ES-TEVA-2018-ES-945590

PATIENT
  Age: 67 Year
  Sex: Female

DRUGS (12)
  1. EUCREAS 50 MG/850 MG COMPRIMIDOS RECUBIERTOS CON PELICULA, 60 COMPRIMI [Suspect]
     Active Substance: METFORMIN HYDROCHLORIDE\VILDAGLIPTIN
     Dosage: 1 TABLET BEFORE LUNCH AND DINNER
     Route: 048
     Dates: start: 20140722
  2. HIDROALTESONA COMPRIMIDOS, 30 COMPRIMIDOS [Suspect]
     Active Substance: HYDROCORTISONE
     Dosage: 30 MILLIGRAM DAILY; 1.5 COMPRESSED BREAKFAST
     Route: 048
     Dates: start: 20171228
  3. ATORVASTATINA AUROVITAS PHARMA 20 MG COMPRIMIDOS RECUBIERTOS CON PELIC [Suspect]
     Active Substance: ATORVASTATIN
     Dosage: 20 MILLIGRAM DAILY; 1 TABLET BEFORE DINNER
     Route: 048
     Dates: start: 20180207
  4. MINURIN FLAS 120 MICROGRAMOS LIOFILIZADO ORAL , 30 LIOFILIZADOS [Concomitant]
     Dosage: 120 MICROGRAM DAILY; 1 TABLET AT DINNER
     Route: 048
     Dates: start: 20160601
  5. OMEPRAZOL RATIO 20 MG CAPSULAS DURAS GASTRORRESISTENTES EFG , 56 C?PSU [Concomitant]
     Dosage: 20 MILLIGRAM DAILY;
     Route: 048
     Dates: start: 20161102
  6. EUTIROX  75 MICROGRAMOS COMPRIMIDOS , 100 COMPRIMIDOS [Concomitant]
     Dosage: 75 MICROGRAM DAILY; ANTES DEL DESAYUNO
     Route: 048
     Dates: start: 20160601
  7. DEPRAX 100 MG COMPRIMIDOS RECUBIERTOS CON PELICULA EFG , 60 COMPRIMIDO [Concomitant]
     Dosage: 100 MILLIGRAM DAILY;
     Route: 048
     Dates: start: 20160620
  8. ENALAPRIL NORMON 20 MG COMPRIMIDOS EFG , 28 COMPRIMIDOS [Suspect]
     Active Substance: ENALAPRIL
     Dosage: 20 MILLIGRAM DAILY; 1 TABLET BEFORE BREAKFAST
     Route: 048
     Dates: start: 20160912
  9. DESMOPRESINA TEVA  0,2 MG COMPRIMIDOS EFG , 30 COMPRIMIDOS [Concomitant]
     Dosage: 1 TABLET AT BREAKFAST, LUNCH AND DINNER
     Route: 048
     Dates: start: 20110920
  10. REPAGLINIDA NORMON 1 MG COMPRIMIDOS EFG, 90 COMPRIMIDOS [Concomitant]
     Dosage: 1 TABLET BEFORE LUNCH AND DINNER
     Route: 048
     Dates: start: 20180207
  11. ATARAX 25 MG COMPRIMIDOS RECUBIERTOS CON PELICULA , 50 COMPRIMIDOS [Concomitant]
     Route: 048
     Dates: start: 20180420
  12. FELODIPINO SANDOZ 5 MG COMPRIMIDOS DE LIBERACI?N PROLONGADA [Concomitant]
     Dosage: 5 MILLIGRAM DAILY;
     Route: 048
     Dates: start: 20151030

REACTIONS (1)
  - Pancreatitis necrotising [Recovering/Resolving]

NARRATIVE: CASE EVENT DATE: 20180702
